FAERS Safety Report 8159230-8 (Version None)
Quarter: 2012Q1

REPORT INFORMATION
  Report Type: 
  Country: None (occurrence: None)
  Receive Date: 20120223
  Receipt Date: 20120217
  Transmission Date: 20120608
  Serious: Yes (Other)
  Sender: FDA-Public Use
  Company Number: US-JNJFOC-2008003110

PATIENT
  Age: 56 Year
  Sex: Male
  Weight: 83.9 kg

DRUGS (2)
  1. MINOXIDIL [Suspect]
     Indication: ALOPECIA
     Dosage: DAILY DOSE TEXT: 1 ML FOR 3 DAYS
     Route: 061
  2. MINOXIDIL [Suspect]
     Route: 061

REACTIONS (2)
  - SKIN DISORDER [None]
  - UNDERDOSE [None]
